FAERS Safety Report 4506723-8 (Version None)
Quarter: 2004Q4

REPORT INFORMATION
  Report Type: 
  Country: None (occurrence: None)
  Receive Date: 20041122
  Receipt Date: 20041115
  Transmission Date: 20050328
  Serious: Yes (Hospitalization, Other)
  Sender: FDA-Public Use
  Company Number: US-MERCK-0411USA02665

PATIENT
  Age: 16 Year
  Sex: Female

DRUGS (1)
  1. VIOXX [Suspect]
     Indication: MIGRAINE
     Route: 048

REACTIONS (4)
  - CYSTITIS INTERSTITIAL [None]
  - NEPHROLITHIASIS [None]
  - OVARIAN CYST [None]
  - PAIN [None]
